FAERS Safety Report 19371217 (Version 1)
Quarter: 2021Q2

REPORT INFORMATION
  Report Type: Spontaneous
  Country: SE (occurrence: GB)
  Receive Date: 20210603
  Receipt Date: 20210603
  Transmission Date: 20210717
  Serious: Yes (Congenital Anomaly, Other)
  Sender: FDA-Public Use
  Company Number: SE-AUROBINDO-AUR-APL-2021-022423

PATIENT
  Age: 15 Year

DRUGS (4)
  1. LAMOTRIGINE. [Suspect]
     Active Substance: LAMOTRIGINE
     Indication: PRODUCT USED FOR UNKNOWN INDICATION
     Dosage: UNK, DURING FIRST, SECOND AND THIRD TRIMESTER
     Route: 064
  2. LEVETIRACETAM. [Suspect]
     Active Substance: LEVETIRACETAM
     Indication: PRODUCT USED FOR UNKNOWN INDICATION
     Dosage: UNK,DURING FIRST, SECOND AND THIRD TRIMESTER
     Route: 064
  3. CLOBAZAM. [Suspect]
     Active Substance: CLOBAZAM
     Indication: PRODUCT USED FOR UNKNOWN INDICATION
     Dosage: 10 MILLIGRAM,ONCE A DAY, DURING FIRST, SECOND AND THIRD TRIMESTER
     Route: 064
  4. VALPROIC ACID. [Suspect]
     Active Substance: VALPROIC ACID
     Indication: PRODUCT USED FOR UNKNOWN INDICATION
     Dosage: DURING FIRST, SECOND AND THIRD TRIMESTER
     Route: 064

REACTIONS (2)
  - Spina bifida [Unknown]
  - Foetal exposure during pregnancy [Unknown]
